FAERS Safety Report 17025828 (Version 1)
Quarter: 2019Q4

REPORT INFORMATION
  Report Type: Spontaneous
  Country: US (occurrence: US)
  Receive Date: 20191113
  Receipt Date: 20191113
  Transmission Date: 20200122
  Serious: Yes (Other)
  Sender: FDA-Public Use
  Company Number: US-ALKERMES INC.-ALK-2019-005910

PATIENT
  Age: 23 Year
  Sex: Male

DRUGS (1)
  1. VIVITROL [Suspect]
     Active Substance: NALTREXONE
     Indication: DRUG DEPENDENCE
     Dosage: 380 MG, QMO
     Route: 030
     Dates: start: 201902, end: 201909

REACTIONS (5)
  - Vomiting [Unknown]
  - Drug dependence [Unknown]
  - Product dose omission [Not Recovered/Not Resolved]
  - Malaise [Unknown]
  - Euphoric mood [Unknown]

NARRATIVE: CASE EVENT DATE: 20191110
